FAERS Safety Report 9472905 (Version 1)
Quarter: 2013Q3

REPORT INFORMATION
  Report Type: Spontaneous
  Country: US (occurrence: US)
  Receive Date: 20130823
  Receipt Date: 20130823
  Transmission Date: 20140515
  Serious: No
  Sender: FDA-Public Use
  Company Number: US-BRISTOL-MYERS SQUIBB COMPANY-17213901

PATIENT
  Age: 47 Year
  Sex: Female

DRUGS (8)
  1. SPRYCEL [Suspect]
     Dates: start: 2008
  2. EXCEDRIN [Concomitant]
     Indication: MIGRAINE
  3. GREEN TEA [Concomitant]
  4. IBUPROFEN [Concomitant]
  5. VAGIFEM [Concomitant]
  6. VITAMIN B COMPLEX [Concomitant]
  7. VITAMIN C [Concomitant]
  8. ZEGERID [Concomitant]

REACTIONS (3)
  - Dyspnoea [Unknown]
  - Fatigue [Unknown]
  - Headache [Unknown]
